FAERS Safety Report 4732458-2 (Version None)
Quarter: 2005Q3

REPORT INFORMATION
  Report Type: 
  Country: None (occurrence: None)
  Receive Date: 20050803
  Receipt Date: 20050722
  Transmission Date: 20060218
  Serious: Yes (Hospitalization)
  Sender: FDA-Public Use
  Company Number: US-BRISTOL-MYERS SQUIBB COMPANY-13047758

PATIENT
  Age: 51 Year
  Sex: Male

DRUGS (4)
  1. AVAPRO [Suspect]
     Indication: HYPERTENSION
     Route: 048
     Dates: start: 20020101
  2. AZITHROMYCIN [Concomitant]
     Indication: SINUSITIS
     Route: 048
     Dates: start: 20050203, end: 20050204
  3. ASPIRIN [Concomitant]
     Dates: start: 19900101
  4. PLACEBO [Concomitant]
     Dates: start: 20050125, end: 20050204

REACTIONS (3)
  - DIZZINESS [None]
  - LACERATION [None]
  - LOSS OF CONSCIOUSNESS [None]
